FAERS Safety Report 16257109 (Version 2)
Quarter: 2019Q2

REPORT INFORMATION
  Report Type: Report from Study
  Country: US (occurrence: US)
  Receive Date: 20190430
  Receipt Date: 20190612
  Transmission Date: 20190711
  Serious: Yes (Hospitalization)
  Sender: FDA-Public Use
  Company Number: US-BIOGEN-2019BI00729118

PATIENT
  Sex: Female

DRUGS (1)
  1. TYSABRI [Suspect]
     Active Substance: NATALIZUMAB
     Indication: MULTIPLE SCLEROSIS
     Dosage: INFUSED OVER 1 HOUR
     Route: 042
     Dates: start: 20171113, end: 20190401

REACTIONS (14)
  - Spinal disorder [Unknown]
  - Lipoma [Unknown]
  - Cervical discharge [Unknown]
  - Malaise [Unknown]
  - Pain [Unknown]
  - Coccydynia [Unknown]
  - Multiple sclerosis relapse [Unknown]
  - Back injury [Unknown]
  - Intervertebral disc protrusion [Unknown]
  - Dyspareunia [Unknown]
  - Uterine leiomyoma [Unknown]
  - Anxiety [Unknown]
  - Stress [Unknown]
  - Back disorder [Unknown]
